FAERS Safety Report 18254855 (Version 1)
Quarter: 2020Q3

REPORT INFORMATION
  Report Type: Spontaneous
  Country: FR (occurrence: FR)
  Receive Date: 20200910
  Receipt Date: 20200910
  Transmission Date: 20201103
  Serious: Yes (Hospitalization)
  Sender: FDA-Public Use
  Company Number: FR-MYLANLABS-2020M1076891

PATIENT
  Age: 89 Year
  Sex: Female

DRUGS (11)
  1. SODIUM [Concomitant]
     Active Substance: SODIUM
     Indication: HYPONATRAEMIA
     Dosage: 4 DOSAGE FORM, QD
     Route: 048
     Dates: end: 20200801
  2. CANDESARTAN CILEXETIL. [Concomitant]
     Active Substance: CANDESARTAN CILEXETIL
     Indication: HYPERTENSION
     Dosage: 16 MILLIGRAM, QD
     Route: 048
     Dates: end: 20200801
  3. ATORVASTATINE                      /01326101/ [Concomitant]
     Active Substance: ATORVASTATIN
     Dosage: 20 MILLIGRAM, QD
     Route: 048
  4. PREVISCAN                          /00789001/ [Interacting]
     Active Substance: FLUINDIONE
     Indication: ATRIAL FIBRILLATION
     Dosage: 15 MILLIGRAM, QD
     Route: 048
     Dates: end: 20200801
  5. LEVOFLOXACIN. [Suspect]
     Active Substance: LEVOFLOXACIN
     Indication: PNEUMONIA
     Dosage: 1 DOSAGE FORM, QD
     Route: 048
     Dates: start: 20200731, end: 20200802
  6. GANFORT [Concomitant]
     Active Substance: BIMATOPROST\TIMOLOL
     Dosage: 1 GTT DROPS, QD
     Route: 047
  7. AMLODIPINE [Concomitant]
     Active Substance: AMLODIPINE BESYLATE
     Indication: HYPERTENSION
     Dosage: 10 MILLIGRAM, QD
     Route: 048
     Dates: end: 20200801
  8. MOVICOL [Concomitant]
     Active Substance: POLYETHYLENE GLYCOL 3350\POTASSIUM CHLORIDE\SODIUM BICARBONATE\SODIUM CHLORIDE
     Dosage: 2 DOSAGE FORM, PRN
     Route: 048
     Dates: end: 20200801
  9. PRIMPERAN [Concomitant]
     Active Substance: METOCLOPRAMIDE HYDROCHLORIDE
     Dosage: 3 DOSAGE FORM, PRN
     Route: 048
     Dates: end: 20200801
  10. BISOPROLOL                         /00802602/ [Concomitant]
     Active Substance: BISOPROLOL
     Indication: HYPERTENSION
     Dosage: 10 MILLIGRAM, QD
     Route: 048
     Dates: end: 20200801
  11. PARACETAMOL [Concomitant]
     Active Substance: ACETAMINOPHEN
     Dosage: 1500 MILLIGRAM, QD, PLUS 1 LA NUIT SI BESOIN
     Route: 048

REACTIONS (4)
  - Drug interaction [Recovered/Resolved]
  - International normalised ratio increased [Recovered/Resolved]
  - Anaemia [Recovering/Resolving]
  - Melaena [Recovered/Resolved]

NARRATIVE: CASE EVENT DATE: 2020
